FAERS Safety Report 10597346 (Version 3)
Quarter: 2014Q4

REPORT INFORMATION
  Report Type: Report from Study
  Country: CA (occurrence: CA)
  Receive Date: 20141121
  Receipt Date: 20141212
  Transmission Date: 20150529
  Serious: Yes (Other)
  Sender: FDA-Public Use
  Company Number: CA-AMGEN-CANSL2014088377

PATIENT
  Age: 71 Year
  Sex: Female

DRUGS (8)
  1. PROLIA [Suspect]
     Active Substance: DENOSUMAB
     Dosage: UNK UNK, Q6MO
     Route: 058
     Dates: start: 20140516, end: 20141208
  2. MULTIVITAMINS [Concomitant]
     Active Substance: VITAMINS
     Dosage: UNK
  3. METFORMIN [Concomitant]
     Active Substance: METFORMIN HYDROCHLORIDE
     Indication: DIABETES MELLITUS
     Dosage: UNK
  4. PROBIOTICS                         /07325001/ [Concomitant]
     Dosage: UNK
  5. PROLIA [Suspect]
     Active Substance: DENOSUMAB
     Indication: OSTEOPOROSIS POSTMENOPAUSAL
     Dosage: 60 MG/ML, Q6MO
     Route: 058
     Dates: start: 20131030, end: 20141208
  6. ACTONEL [Suspect]
     Active Substance: RISEDRONATE SODIUM
     Indication: OSTEOPOROSIS
     Dosage: 35 MG, QWK
     Route: 048
     Dates: start: 20100910, end: 20130909
  7. NAPROFEN [Concomitant]
     Indication: OSTEOARTHRITIS
     Dosage: 250 UNK, BID
     Route: 048
     Dates: start: 20140909
  8. CYMBALTA [Concomitant]
     Active Substance: DULOXETINE HYDROCHLORIDE
     Indication: PAIN
     Dosage: 30 UNK, QD
     Route: 048
     Dates: start: 20140329

REACTIONS (6)
  - Tooth disorder [Unknown]
  - Tooth loss [Not Recovered/Not Resolved]
  - Vomiting [Unknown]
  - Alveolar bone resorption [Not Recovered/Not Resolved]
  - Oral surgery [Unknown]
  - Gingivitis [Unknown]

NARRATIVE: CASE EVENT DATE: 20141020
